FAERS Safety Report 6462102-8 (Version None)
Quarter: 2009Q4

REPORT INFORMATION
  Report Type: 
  Country: None (occurrence: None)
  Receive Date: 20091130
  Receipt Date: 20091119
  Transmission Date: 20100525
  Serious: Yes (Other)
  Sender: FDA-Public Use
  Company Number: JP-ASTRAZENECA-2009SE28955

PATIENT
  Age: 73 Year
  Sex: Male

DRUGS (1)
  1. MEROPEN [Suspect]
     Indication: PNEUMONIA
     Route: 042
     Dates: end: 20091116

REACTIONS (1)
  - HEPATIC FUNCTION ABNORMAL [None]
